FAERS Safety Report 6266846-2 (Version None)
Quarter: 2009Q3

REPORT INFORMATION
  Report Type: 
  Country: None (occurrence: None)
  Receive Date: 20090714
  Receipt Date: 20090602
  Transmission Date: 20100115
  Serious: Yes (Hospitalization, Other)
  Sender: FDA-Public Use
  Company Number: US-NAPPMUNDI-USA-2009-0038921

PATIENT
  Sex: Female

DRUGS (2)
  1. OXYCONTIN [Suspect]
     Indication: ANALGESIA
     Dosage: 40 MG, TID
     Dates: start: 19980125, end: 20060826
  2. OXYCONTIN [Suspect]
     Indication: PROCEDURAL PAIN

REACTIONS (6)
  - AMNESIA [None]
  - DEPRESSION [None]
  - DRUG DEPENDENCE [None]
  - FEELING ABNORMAL [None]
  - GENERAL PHYSICAL HEALTH DETERIORATION [None]
  - RESPIRATORY FAILURE [None]
